FAERS Safety Report 4452032-5 (Version None)
Quarter: 2004Q3

REPORT INFORMATION
  Report Type: 
  Country: None (occurrence: None)
  Receive Date: 20040917
  Receipt Date: 20040909
  Transmission Date: 20050211
  Serious: Yes (Death)
  Sender: FDA-Public Use
  Company Number: CA-JNJFOC-20040904329

PATIENT
  Age: 84 Year
  Sex: Male

DRUGS (13)
  1. LEVOFLOXACIN [Suspect]
     Indication: DRUG USE FOR UNKNOWN INDICATION
     Route: 049
  2. DESYREL [Suspect]
     Indication: DRUG USE FOR UNKNOWN INDICATION
     Route: 049
  3. COENZYME [Concomitant]
  4. COLACE [Concomitant]
  5. COUMADIN [Concomitant]
  6. EURO K8 [Concomitant]
  7. HALDOL [Concomitant]
  8. LASIX [Concomitant]
  9. MONOCOR [Concomitant]
  10. RISPERDAL [Concomitant]
  11. SYNTHROID [Concomitant]
  12. VITALUX [Concomitant]
  13. THERMO GEL [Concomitant]

REACTIONS (6)
  - BLOOD BILIRUBIN INCREASED [None]
  - BLOOD CREATININE INCREASED [None]
  - CARDIOGENIC SHOCK [None]
  - HAEMOGLOBIN DECREASED [None]
  - HEPATITIS [None]
  - PROTHROMBIN TIME PROLONGED [None]
